FAERS Safety Report 18323988 (Version 1)
Quarter: 2020Q3

REPORT INFORMATION
  Report Type: Spontaneous
  Country: GB (occurrence: GB)
  Receive Date: 20200929
  Receipt Date: 20200929
  Transmission Date: 20201103
  Serious: Yes (Death)
  Sender: FDA-Public Use
  Company Number: GB-AMNEAL PHARMACEUTICALS-2020-AMRX-02978

PATIENT

DRUGS (2)
  1. CAPECITABINE. [Suspect]
     Active Substance: CAPECITABINE
     Indication: RECTAL CANCER
     Dosage: 900MG/M (CRT) OR 650 MG/M2 BD WEEKDAYS
     Route: 065
  2. IRINOTECAN [Suspect]
     Active Substance: IRINOTECAN
     Indication: RECTAL CANCER
     Dosage: 60 MILLIGRAM/SQ. METER, 1 /WEEK (WEEKS 1?4)
     Route: 042

REACTIONS (1)
  - Adverse event [Fatal]
